FAERS Safety Report 7105914-X (Version None)
Quarter: 2010Q4

REPORT INFORMATION
  Report Type: 
  Country: None (occurrence: None)
  Receive Date: 20101116
  Receipt Date: 20101108
  Transmission Date: 20110411
  Serious: Yes (Other)
  Sender: FDA-Public Use
  Company Number: B0683355A

PATIENT
  Age: 14 Year
  Sex: Male
  Weight: 39.46 kg

DRUGS (1)
  1. SUMATRIPTAN SUCCINATE [Suspect]
     Route: 048
     Dates: start: 20101102, end: 20101102

REACTIONS (1)
  - CONFUSIONAL STATE [None]
